FAERS Safety Report 11742181 (Version 1)
Quarter: 2015Q4

REPORT INFORMATION
  Report Type: Spontaneous
  Country: US (occurrence: None)
  Receive Date: 20151113
  Receipt Date: 20151113
  Transmission Date: 20160304
  Serious: Yes (Other)
  Sender: FDA-Public Use
  Company Number: None

PATIENT
  Age: 65 Year
  Sex: Female
  Weight: 70.31 kg

DRUGS (3)
  1. CHLORAPREP [Suspect]
     Active Substance: CHLORHEXIDINE GLUCONATE\ISOPROPYL ALCOHOL
     Indication: INFECTION PROPHYLAXIS
     Route: 061
     Dates: start: 20150615
  2. PREDNISONE. [Concomitant]
     Active Substance: PREDNISONE
  3. LABETALOL HCL [Concomitant]
     Active Substance: LABETALOL HYDROCHLORIDE

REACTIONS (5)
  - Burns second degree [None]
  - Application site vesicles [None]
  - Blood blister [None]
  - Secretion discharge [None]
  - Application site pain [None]

NARRATIVE: CASE EVENT DATE: 20150615
